FAERS Safety Report 5132117-0 (Version None)
Quarter: 2006Q4

REPORT INFORMATION
  Report Type: 
  Country: None (occurrence: None)
  Receive Date: 20061017
  Receipt Date: 20061003
  Transmission Date: 20070319
  Serious: Yes (Hospitalization)
  Sender: FDA-Public Use
  Company Number: 2006SP003506

PATIENT
  Sex: Male
  Weight: 74.8435 kg

DRUGS (1)
  1. LUNESTA [Suspect]
     Indication: INSOMNIA
     Dosage: 2 MG; ORAL
     Route: 048
     Dates: start: 20060915, end: 20060901

REACTIONS (5)
  - DIALYSIS [None]
  - HALLUCINATION [None]
  - HYPERTENSION [None]
  - RENAL FAILURE [None]
  - SLEEP WALKING [None]
